FAERS Safety Report 9194141 (Version 3)
Quarter: 2013Q2

REPORT INFORMATION
  Report Type: Spontaneous
  Country: US (occurrence: US)
  Receive Date: 20130327
  Receipt Date: 20130508
  Transmission Date: 20140414
  Serious: Yes (Hospitalization)
  Sender: FDA-Public Use
  Company Number: US-PERRIGO-13US002984

PATIENT
  Age: 4 Year
  Sex: Female
  Weight: 15.87 kg

DRUGS (3)
  1. ACETAMINOPHEN CHILD GRAPE 32 MG/ML 130 [Suspect]
     Indication: PYREXIA
     Dosage: 160 MG, SINGLE
     Route: 048
     Dates: start: 20130310, end: 20130310
  2. SYNTHROID [Concomitant]
     Indication: HYPOTHYROIDISM
     Dosage: UNK
     Route: 048
     Dates: start: 20080909
  3. MOTRIN [Concomitant]
     Indication: PYREXIA
     Dosage: UNK, UNK
     Route: 065
     Dates: start: 20130310

REACTIONS (10)
  - Anaphylactic reaction [Recovered/Resolved]
  - Abdominal pain upper [Recovered/Resolved]
  - Cyanosis [Recovered/Resolved]
  - Urticaria [Recovered/Resolved]
  - Erythema [Recovered/Resolved]
  - Swelling face [Recovered/Resolved]
  - Ear swelling [Recovered/Resolved]
  - Eye swelling [Recovered/Resolved]
  - Swollen tongue [Recovered/Resolved]
  - Drug ineffective [Unknown]
